FAERS Safety Report 8807225 (Version 1)
Quarter: 2012Q4

REPORT INFORMATION
  Report Type: 
  Country: HU (occurrence: HU)
  Receive Date: 20120925
  Receipt Date: 20120925
  Transmission Date: 20130627
  Serious: Yes (Other)
  Sender: FDA-Public Use
  Company Number: HU-ROCHE-1134400

PATIENT
  Age: 57 Year
  Sex: Female

DRUGS (5)
  1. XOLAIR [Suspect]
     Indication: ASTHMA
     Dosage: 150 mg
     Route: 058
     Dates: start: 20120507, end: 20120910
  2. BERODUAL N [Concomitant]
     Route: 065
     Dates: start: 20100603
  3. ACCOLATE [Concomitant]
     Route: 065
     Dates: start: 20100603
  4. XYZAL [Concomitant]
     Route: 065
     Dates: start: 20100603
  5. SERETIDE [Concomitant]
     Route: 065
     Dates: start: 20100603

REACTIONS (9)
  - Breast swelling [Recovered/Resolved]
  - Pitted keratolysis [Recovered/Resolved]
  - Paraesthesia [Recovered/Resolved]
  - Skin disorder [Recovered/Resolved]
  - Breast pain [Recovered/Resolved]
  - Erythema [Recovered/Resolved]
  - Pruritus [Recovered/Resolved]
  - White blood cell count increased [Recovered/Resolved]
  - Neutrophil count increased [Recovered/Resolved]
